FAERS Safety Report 6151844-X (Version None)
Quarter: 2009Q2

REPORT INFORMATION
  Report Type: 
  Country: None (occurrence: None)
  Receive Date: 20090410
  Receipt Date: 20090402
  Transmission Date: 20091009
  Serious: Yes (Hospitalization, Other)
  Sender: FDA-Public Use
  Company Number: US-ABBOTT-09P-163-0566647-00

PATIENT
  Sex: Male

DRUGS (4)
  1. HUMIRA [Suspect]
     Indication: RHEUMATOID ARTHRITIS
     Dosage: NOT REPORTED
     Dates: start: 20060512, end: 20071101
  2. HUMIRA [Suspect]
     Dosage: NOT REPORTED
     Dates: start: 20080201
  3. METHOTREXATE [Suspect]
     Indication: RHEUMATOID ARTHRITIS
     Dosage: NOT REPORTED
  4. METHOTREXATE [Concomitant]
     Dosage: NOT REPORTED

REACTIONS (4)
  - ARTHROPATHY [None]
  - PNEUMONIA STREPTOCOCCAL [None]
  - RESPIRATORY FAILURE [None]
  - TUBERCULIN TEST POSITIVE [None]
